FAERS Safety Report 16838452 (Version 1)
Quarter: 2019Q3

REPORT INFORMATION
  Report Type: Spontaneous
  Country: US (occurrence: US)
  Receive Date: 20190731
  Receipt Date: 20190731
  Transmission Date: 20191005
  Serious: Yes (Hospitalization)
  Sender: FDA-Public Use
  Company Number: None

PATIENT
  Age: 36 Year
  Sex: Male
  Weight: 98 kg

DRUGS (1)
  1. HALOPERIDOL. [Suspect]
     Active Substance: HALOPERIDOL
     Indication: SCHIZOAFFECTIVE DISORDER
     Route: 048
     Dates: start: 20190725, end: 20190730

REACTIONS (4)
  - Blood creatine phosphokinase increased [None]
  - Condition aggravated [None]
  - Pyrexia [None]
  - Dystonia [None]

NARRATIVE: CASE EVENT DATE: 20190730
